FAERS Safety Report 4486983-2 (Version None)
Quarter: 2004Q4

REPORT INFORMATION
  Report Type: 
  Country: None (occurrence: None)
  Receive Date: 20041027
  Receipt Date: 20041018
  Transmission Date: 20050328
  Serious: Yes (Hospitalization, Disabling)
  Sender: FDA-Public Use
  Company Number: BR-ROCHE-383633

PATIENT
  Age: 46 Year
  Sex: Female
  Weight: 50 kg

DRUGS (3)
  1. RIVOTRIL [Suspect]
     Indication: INSOMNIA
     Route: 048
     Dates: start: 20000615, end: 20040915
  2. RIVOTRIL [Suspect]
     Route: 048
     Dates: start: 20040915
  3. FLUOXETINE [Concomitant]
     Indication: DEPRESSION
     Route: 048
     Dates: start: 20000615

REACTIONS (12)
  - ANOREXIA [None]
  - CHEST INJURY [None]
  - CONDITION AGGRAVATED [None]
  - DEAFNESS [None]
  - DEPRESSION [None]
  - EAR DISORDER [None]
  - EAR INJURY [None]
  - GUN SHOT WOUND [None]
  - LABYRINTHITIS [None]
  - LACRIMATION DECREASED [None]
  - SUICIDE ATTEMPT [None]
  - WEIGHT DECREASED [None]
